FAERS Safety Report 5310510-0 (Version None)
Quarter: 2007Q2

REPORT INFORMATION
  Report Type: 
  Country: None (occurrence: None)
  Receive Date: 20070427
  Receipt Date: 20070420
  Transmission Date: 20071010
  Serious: Yes (Other)
  Sender: FDA-Public Use
  Company Number: TW-ABBOTT-07P-153-0364656-00

PATIENT
  Age: 38 Year
  Sex: Male

DRUGS (4)
  1. VALPROIC ACID [Suspect]
     Indication: EPILEPSY
     Dates: start: 20030301
  2. VALPROIC ACID [Suspect]
  3. CARBAMAZEPINE [Concomitant]
     Indication: CONVULSION
     Route: 048
  4. CARBAMAZEPINE [Concomitant]
     Dosage: NOT REPORTED

REACTIONS (1)
  - STATUS EPILEPTICUS [None]
